FAERS Safety Report 12661984 (Version 3)
Quarter: 2016Q3

REPORT INFORMATION
  Report Type: Spontaneous
  Country: US (occurrence: US)
  Receive Date: 20160817
  Receipt Date: 20160831
  Transmission Date: 20161109
  Serious: Yes (Hospitalization, Other)
  Sender: FDA-Public Use
  Company Number: US-ACTELION-A-US2016-140772

PATIENT
  Age: 56 Year
  Sex: Female

DRUGS (4)
  1. AMBRISENTAN [Suspect]
     Active Substance: AMBRISENTAN
     Indication: PULMONARY ARTERIAL HYPERTENSION
     Dosage: 10 MG, QD
     Route: 065
     Dates: start: 20110805
  2. UPTRAVI [Suspect]
     Active Substance: SELEXIPAG
     Indication: PRODUCT USED FOR UNKNOWN INDICATION
     Route: 048
  3. AMLODIPINE [Concomitant]
     Active Substance: AMLODIPINE BESYLATE
  4. ADCIRCA [Concomitant]
     Active Substance: TADALAFIL

REACTIONS (11)
  - Nausea [Unknown]
  - Feeling hot [Unknown]
  - Chest discomfort [Unknown]
  - Malaise [Unknown]
  - Pain in jaw [Unknown]
  - Oxygen saturation decreased [Unknown]
  - Peripheral swelling [Unknown]
  - Headache [Recovering/Resolving]
  - Cyanosis [Unknown]
  - Flushing [Unknown]
  - Dyspnoea [Unknown]
